FAERS Safety Report 8777722 (Version 1)
Quarter: 2012Q4

REPORT INFORMATION
  Report Type: 
  Country: BR (occurrence: BR)
  Receive Date: 20120911
  Receipt Date: 20120911
  Transmission Date: 20130627
  Serious: Yes (Hospitalization)
  Sender: FDA-Public Use
  Company Number: BR-ASTRAZENECA-2012SE33709

PATIENT
  Age: 49 Year
  Sex: Female

DRUGS (3)
  1. SELOZOK [Suspect]
     Indication: HYPERTENSION
     Route: 048
     Dates: start: 2010
  2. SELOZOK [Suspect]
     Indication: ARRHYTHMIA
     Route: 048
     Dates: start: 2010
  3. UNKOWN [Concomitant]
     Indication: HYPERTENSION
     Route: 048

REACTIONS (1)
  - Gallbladder pain [Recovered/Resolved]
